FAERS Safety Report 15533128 (Version 2)
Quarter: 2018Q4

REPORT INFORMATION
  Report Type: Other
  Country: FR (occurrence: FR)
  Receive Date: 20181021
  Receipt Date: 20181021
  Transmission Date: 20190205
  Serious: Yes (Hospitalization, Other)
  Sender: FDA-Public Use
  Company Number: FR-DEXPHARM-20180802

PATIENT
  Age: 16 Year
  Sex: Female

DRUGS (5)
  1. LAMOTRIGINE. [Suspect]
     Active Substance: LAMOTRIGINE
     Indication: PARTIAL SEIZURES
  2. AMOXICILLIN. [Concomitant]
     Active Substance: AMOXICILLIN
  3. LEVETIRACETAM. [Suspect]
     Active Substance: LEVETIRACETAM
     Indication: PARTIAL SEIZURES
  4. CLINDAMYCIN. [Concomitant]
     Active Substance: CLINDAMYCIN
  5. CLAVULANIC ACID [Concomitant]
     Active Substance: CLAVULANIC ACID

REACTIONS (1)
  - Haemophagocytic lymphohistiocytosis [Recovered/Resolved]
